FAERS Safety Report 17168385 (Version 1)
Quarter: 2019Q4

REPORT INFORMATION
  Report Type: Spontaneous
  Country: US (occurrence: US)
  Receive Date: 20191218
  Receipt Date: 20191218
  Transmission Date: 20200122
  Serious: Yes (Other)
  Sender: FDA-Public Use
  Company Number: US-TEVA-2019-US-1152575

PATIENT
  Sex: Male

DRUGS (1)
  1. AJOVY [Suspect]
     Active Substance: FREMANEZUMAB-VFRM
     Indication: MIGRAINE
     Dosage: ONCE MONTHLY
     Route: 058

REACTIONS (3)
  - Migraine [Unknown]
  - Dementia with Lewy bodies [Unknown]
  - Inappropriate schedule of product administration [Unknown]
